FAERS Safety Report 14733323 (Version 1)
Quarter: 2018Q2

REPORT INFORMATION
  Report Type: Spontaneous
  Country: TR (occurrence: TR)
  Receive Date: 20180409
  Receipt Date: 20180409
  Transmission Date: 20180711
  Serious: Yes (Other)
  Sender: FDA-Public Use
  Company Number: TR-BAYER-2018-062000

PATIENT
  Age: 73 Year
  Sex: Female

DRUGS (4)
  1. RITUXIMAB. [Concomitant]
     Active Substance: RITUXIMAB
     Dosage: 375 MG/ M(2) WEEKLY TO 4 CYCLES DUE TO ADVANCED AGE
  2. ANTIHEMOPHILIC FACTOR (RECOMBINANT), SUCROSE FORMULATED FS [Suspect]
     Active Substance: ANTIHEMOPHILIC FACTOR, HUMAN RECOMBINANT
     Indication: FACTOR VIII DEFICIENCY
  3. FACTOR VIIA [Concomitant]
     Dosage: 90 ?G/KG EVERY 2 HOURS
  4. ANTIHEMOPHILIC FACTOR (RECOMBINANT), SUCROSE FORMULATED FS [Suspect]
     Active Substance: ANTIHEMOPHILIC FACTOR, HUMAN RECOMBINANT
     Indication: HAEMATOCHEZIA
     Dosage: OSE OF 60 IU/KG APPROXIMATELY EVERY 12 HOURS FOR 5 CONSECUTIVE DAYS

REACTIONS (2)
  - Anti factor VIII antibody positive [Recovered/Resolved]
  - Haematochezia [Recovered/Resolved]
